FAERS Safety Report 5913105-0 (Version None)
Quarter: 2008Q4

REPORT INFORMATION
  Report Type: 
  Country: None (occurrence: None)
  Receive Date: 20081008
  Receipt Date: 20081008
  Transmission Date: 20090506
  Serious: Yes (Disabling)
  Sender: FDA-Public Use
  Company Number: None

PATIENT
  Sex: Male
  Weight: 62.1428 kg

DRUGS (1)
  1. METOCLOPRAMIDE [Suspect]
     Indication: GASTRIC DISORDER
     Dosage: 1 TABLET @ BEDTIME W/WATER
     Dates: start: 20080625, end: 20080816

REACTIONS (2)
  - EXTRASYSTOLES [None]
  - PALPITATIONS [None]
